FAERS Safety Report 12198050 (Version 1)
Quarter: 2016Q1

REPORT INFORMATION
  Report Type: Spontaneous
  Country: US (occurrence: US)
  Receive Date: 20160322
  Receipt Date: 20160322
  Transmission Date: 20160526
  Serious: Yes (Hospitalization)
  Sender: FDA-Public Use
  Company Number: US-JNJFOC-20160303530

PATIENT
  Sex: Female
  Weight: 68.04 kg

DRUGS (1)
  1. TOPAMAX [Suspect]
     Active Substance: TOPIRAMATE
     Indication: MIGRAINE
     Dosage: STARTED POSSIBLY IN 2003
     Route: 048

REACTIONS (1)
  - Angle closure glaucoma [Recovered/Resolved]
